FAERS Safety Report 7304452-9 (Version None)
Quarter: 2011Q1

REPORT INFORMATION
  Report Type: 
  Country: None (occurrence: None)
  Receive Date: 20110221
  Receipt Date: 20100726
  Transmission Date: 20110831
  Serious: Yes (Other)
  Sender: FDA-Public Use
  Company Number: PHHY2010US71744

PATIENT
  Age: 18 Year
  Sex: Female

DRUGS (2)
  1. IMATINIB [Suspect]
     Dosage: 800 MG, QD
     Dates: start: 20060201
  2. IMATINIB [Suspect]
     Indication: CHRONIC MYELOID LEUKAEMIA
     Dosage: 400 MG, QD
     Dates: start: 20030101, end: 20080201

REACTIONS (3)
  - DRUG EXPOSURE BEFORE PREGNANCY [None]
  - PREMATURE LABOUR [None]
  - DRUG RESISTANCE [None]
